FAERS Safety Report 7998130-0 (Version None)
Quarter: 2011Q4

REPORT INFORMATION
  Report Type: 
  Country: None (occurrence: None)
  Receive Date: 20111221
  Receipt Date: 20110223
  Transmission Date: 20120403
  Serious: No
  Sender: FDA-Public Use
  Company Number: US-GLAXOSMITHKLINE-A0915065A

PATIENT
  Age: 58 Year
  Sex: Male

DRUGS (9)
  1. GEMFIBROZIL [Concomitant]
  2. VITAMIN C SUPPLEMENT [Concomitant]
  3. METFORMIN HCL [Concomitant]
  4. MULTIVITAMIN SUPPLEMENT [Concomitant]
  5. OMEPRAZOLE [Concomitant]
  6. LEVOTHYROXINE SODIUM [Concomitant]
  7. ASPIRIN [Concomitant]
  8. LOVAZA [Suspect]
     Indication: BLOOD TRIGLYCERIDES INCREASED
     Dosage: 2CAP TWICE PER DAY
     Route: 048
  9. LOVASTATIN [Concomitant]

REACTIONS (3)
  - ERUCTATION [None]
  - DYSGEUSIA [None]
  - VITAMIN D DECREASED [None]
